FAERS Safety Report 9339070 (Version 1)
Quarter: 2013Q2

REPORT INFORMATION
  Report Type: Spontaneous
  Country: US (occurrence: None)
  Receive Date: 20130606
  Receipt Date: 20130606
  Transmission Date: 20140414
  Serious: Yes (Other)
  Sender: FDA-Public Use
  Company Number: None

PATIENT
  Age: 25 Year
  Sex: Female

DRUGS (4)
  1. ABILIFY (ARIPIPRAZOLE) [Suspect]
     Indication: BIPOLAR DISORDER
     Dosage: 1 PILL  TWICE DAILY  BY MOUTH
     Route: 048
     Dates: start: 201101
  2. XANAX [Concomitant]
  3. ADVIL [Concomitant]
  4. TYLENOL [Concomitant]

REACTIONS (3)
  - Abasia [None]
  - Eye movement disorder [None]
  - Gaze palsy [None]
